FAERS Safety Report 7516999-0 (Version None)
Quarter: 2011Q2

REPORT INFORMATION
  Report Type: 
  Country: None (occurrence: None)
  Receive Date: 20110601
  Receipt Date: 20110519
  Transmission Date: 20111010
  Serious: Yes (Other)
  Sender: FDA-Public Use
  Company Number: PHHY2010US76627

PATIENT
  Sex: Female
  Weight: 70 kg

DRUGS (2)
  1. AVELOX [Suspect]
  2. AFINITOR [Suspect]
     Dosage: 10 MG DAILY
     Route: 048
     Dates: start: 20101129

REACTIONS (3)
  - LIP SWELLING [None]
  - SINUSITIS [None]
  - APHTHOUS STOMATITIS [None]
